FAERS Safety Report 4803693-X (Version None)
Quarter: 2005Q4

REPORT INFORMATION
  Report Type: 
  Country: None (occurrence: None)
  Receive Date: 20051013
  Receipt Date: 20050809
  Transmission Date: 20060501
  Serious: Yes (Other)
  Sender: FDA-Public Use
  Company Number: 2005117413

PATIENT
  Sex: Female

DRUGS (2)
  1. DEPO-SUBQ PROVERA 104 [Suspect]
     Indication: ILL-DEFINED DISORDER
     Dosage: 104 MG (104 MG, FIRST INJECTION), SUBCUTANEOUS; 104 MG (104 MG,MOST RECENT INJECTION), SUBCUTANEOUS
     Route: 058
     Dates: start: 20041209, end: 20041219
  2. DEPO-SUBQ PROVERA 104 [Suspect]
     Indication: ILL-DEFINED DISORDER
     Dosage: 104 MG (104 MG, FIRST INJECTION), SUBCUTANEOUS; 104 MG (104 MG,MOST RECENT INJECTION), SUBCUTANEOUS
     Route: 058
     Dates: start: 20050725, end: 20050725

REACTIONS (2)
  - DYSMENORRHOEA [None]
  - MENORRHAGIA [None]
